FAERS Safety Report 23825464 (Version 2)
Quarter: 2024Q2

REPORT INFORMATION
  Report Type: Spontaneous
  Country: US (occurrence: US)
  Receive Date: 20240507
  Receipt Date: 20240517
  Transmission Date: 20240716
  Serious: No
  Sender: FDA-Public Use
  Company Number: US-HALEON-2173011

PATIENT
  Age: 40 Year
  Sex: Female

DRUGS (2)
  1. TERBINAFINE [Suspect]
     Active Substance: TERBINAFINE
     Indication: Product used for unknown indication
     Dosage: UNK
     Route: 065
  2. DOXYCYCLINE [Suspect]
     Active Substance: DOXYCYCLINE
     Indication: Product used for unknown indication
     Dosage: DOXY 100 GE
     Route: 065

REACTIONS (6)
  - Nail discolouration [Unknown]
  - Nail dystrophy [Unknown]
  - Onychalgia [Not Recovered/Not Resolved]
  - Nail infection [Not Recovered/Not Resolved]
  - Nail hypertrophy [Unknown]
  - Drug ineffective [Not Recovered/Not Resolved]
